FAERS Safety Report 9186809 (Version 1)
Quarter: 2012Q4

REPORT INFORMATION
  Report Type: Report from Study
  Country: CA (occurrence: CA)
  Receive Date: 20121102
  Receipt Date: 20121102
  Transmission Date: 20130627
  Serious: Yes (Other)
  Sender: FDA-Public Use
  Company Number: CA-JNJFOC-20121013171

PATIENT
  Age: 54 None
  Sex: Female
  Weight: 67 kg

DRUGS (2)
  1. REMICADE [Suspect]
     Indication: COLITIS ULCERATIVE
     Route: 042
     Dates: start: 2008
  2. SALOFALK [Concomitant]
     Dosage: 3 tabs twice a day
     Route: 048

REACTIONS (2)
  - Polycystic ovaries [Unknown]
  - Thyroid disorder [Unknown]
